FAERS Safety Report 22925170 (Version 5)
Quarter: 2024Q1

REPORT INFORMATION
  Report Type: Report from Study
  Country: US (occurrence: US)
  Receive Date: 20230908
  Receipt Date: 20240219
  Transmission Date: 20240409
  Serious: Yes (Other)
  Sender: FDA-Public Use
  Company Number: US-002147023-NVSC2023US192496

PATIENT
  Sex: Male

DRUGS (1)
  1. KESIMPTA [Suspect]
     Active Substance: OFATUMUMAB
     Indication: Product used for unknown indication
     Dosage: UNK
     Route: 065

REACTIONS (7)
  - Autism spectrum disorder [Unknown]
  - Influenza like illness [Recovering/Resolving]
  - Chills [Recovering/Resolving]
  - Hyperthermia [Recovering/Resolving]
  - Pain [Unknown]
  - Aphasia [Unknown]
  - Hypophagia [Unknown]
